FAERS Safety Report 14462102 (Version 3)
Quarter: 2018Q1

REPORT INFORMATION
  Report Type: Report from Study
  Country: CN (occurrence: CN)
  Receive Date: 20180130
  Receipt Date: 20180309
  Transmission Date: 20180509
  Serious: Yes (Death, Hospitalization)
  Sender: FDA-Public Use
  Company Number: CN-BAYER-2017-251186

PATIENT
  Age: 43 Year
  Sex: Male

DRUGS (1)
  1. STIVARGA [Suspect]
     Active Substance: REGORAFENIB
     Indication: COLORECTAL CANCER
     Dosage: 120 MG, QD
     Route: 048
     Dates: start: 20171218

REACTIONS (5)
  - Cachexia [Not Recovered/Not Resolved]
  - Frequent bowel movements [Recovering/Resolving]
  - Platelet count decreased [Recovering/Resolving]
  - Colorectal cancer [Fatal]
  - Dyspepsia [Recovering/Resolving]

NARRATIVE: CASE EVENT DATE: 20171227
